FAERS Safety Report 8428709-3 (Version None)
Quarter: 2012Q2

REPORT INFORMATION
  Report Type: 
  Country: None (occurrence: None)
  Receive Date: 20120606
  Receipt Date: 20120531
  Transmission Date: 20120825
  Serious: Yes (Death, Hospitalization, Other)
  Sender: FDA-Public Use
  Company Number: AUR-APL-2009-00734

PATIENT
  Age: 71 Year
  Sex: Female

DRUGS (8)
  1. METFFORMIN HYDROCHLORIDE [Suspect]
     Indication: PRODUCT USED FOR UNKNOWN INDICATION
     Dosage: 500 MG (500 MG, 1 IN 1 D)
  2. TRANEXAMIC ACID [Suspect]
     Indication: HAEMORRHAGE
     Dosage: 3 GM (1 GM, 3 IN 1 D),ORAL
     Route: 048
  3. ASPIRIN [Suspect]
     Indication: PRODUCT USED FOR UNKNOWN INDICATION
     Dosage: 4 GM (1 GM, 4 IN 1 D)
  4. CAPECITABINE [Suspect]
     Indication: GASTRIC CANCER
     Dosage: ORAL
     Route: 048
  5. LANSOPRAZOLE [Suspect]
     Indication: PRODUCT USED FOR UNKNOWN INDICATION
     Dosage: 60 MG (30 MG, 2 IN 1 D), ORAL
     Route: 048
  6. ETHAMSYLATE (ETAMSILATE) [Suspect]
     Indication: GASTROINTESTINAL HAEMORRHAGE
     Dosage: 2000 MG (500 MG, 4 IN 1 D)
  7. UNIPHYL [Suspect]
     Indication: PRODUCT USED FOR UNKNOWN INDICATION
     Dosage: 400 MG (200 MG, 1 IN 1 D)
  8. ACETAMINOPHEN [Suspect]
     Indication: PRODUCT USED FOR UNKNOWN INDICATION
     Dosage: 4 GM (1 GM, 4 IN 1 D)

REACTIONS (8)
  - NEOPLASM MALIGNANT [None]
  - SEPSIS [None]
  - ANAEMIA [None]
  - MELAENA [None]
  - LYMPHADENOPATHY [None]
  - METASTASES TO LIVER [None]
  - RECTAL HAEMORRHAGE [None]
  - METASTASES TO LUNG [None]
